FAERS Safety Report 21811146 (Version 1)
Quarter: 2022Q4

REPORT INFORMATION
  Report Type: Spontaneous
  Country: US (occurrence: None)
  Receive Date: 20221230
  Receipt Date: 20221230
  Transmission Date: 20230113
  Serious: Yes (Other)
  Sender: FDA-Public Use
  Company Number: None

PATIENT
  Age: 84 Year
  Sex: Female
  Weight: 73.03 kg

DRUGS (1)
  1. VALSARTAN [Suspect]
     Active Substance: VALSARTAN
     Dates: start: 20221219, end: 20221222

REACTIONS (2)
  - Drug ineffective [None]
  - Hypertensive emergency [None]

NARRATIVE: CASE EVENT DATE: 20221222
